FAERS Safety Report 12629324 (Version 4)
Quarter: 2019Q1

REPORT INFORMATION
  Report Type: Spontaneous
  Country: ES (occurrence: ES)
  Receive Date: 20160808
  Receipt Date: 20190213
  Transmission Date: 20190417
  Serious: Yes (Other)
  Sender: FDA-Public Use
  Company Number: ES-AUROBINDO-AUR-APL-2016-10100

PATIENT

DRUGS (7)
  1. LORATADINE. [Interacting]
     Active Substance: LORATADINE
     Indication: RASH PRURITIC
  2. LORATADINE. [Interacting]
     Active Substance: LORATADINE
     Indication: RASH
     Dosage: 10 MILLIGRAM, DAILY
     Route: 048
  3. FLECAINIDE [Suspect]
     Active Substance: FLECAINIDE
     Indication: SINUS RHYTHM
     Dosage: 50 MILLIGRAM, TWO TIMES A DAY
     Route: 065
  4. FLECAINIDE [Interacting]
     Active Substance: FLECAINIDE
     Dosage: 100 MILLIGRAM, ONCE A DAY,50 MG, 2X/DAY (BID)
     Route: 065
  5. ATARAX [Interacting]
     Active Substance: HYDROXYZINE HYDROCHLORIDE
     Indication: RASH
     Dosage: 25 MILLIGRAM, DAILY
     Route: 065
  6. ATARAX [Interacting]
     Active Substance: HYDROXYZINE HYDROCHLORIDE
     Indication: RASH PRURITIC
  7. BISOPROLOL [Concomitant]
     Active Substance: BISOPROLOL
     Indication: PRODUCT USED FOR UNKNOWN INDICATION
     Dosage: 2.5 MILLIGRAM, TWO TIMES A DAY
     Route: 065

REACTIONS (5)
  - Cardiac arrest [Recovered/Resolved]
  - Electrocardiogram QT prolonged [Recovered/Resolved]
  - Ventricular fibrillation [Recovered/Resolved]
  - Drug interaction [Recovered/Resolved]
  - Torsade de pointes [Recovered/Resolved]
